FAERS Safety Report 12995670 (Version 1)
Quarter: 2016Q4

REPORT INFORMATION
  Report Type: Spontaneous
  Country: FR (occurrence: FR)
  Receive Date: 20161202
  Receipt Date: 20161202
  Transmission Date: 20170207
  Serious: Yes (Hospitalization)
  Sender: FDA-Public Use
  Company Number: FR-ELI_LILLY_AND_COMPANY-FR201611007496

PATIENT
  Age: 80 Year
  Sex: Male

DRUGS (11)
  1. GEMZAR [Suspect]
     Active Substance: GEMCITABINE HYDROCHLORIDE
     Indication: BRONCHIAL CARCINOMA
     Dosage: UNK, CYCLICAL
     Route: 058
     Dates: start: 20160818, end: 20160826
  2. LOVENOX [Concomitant]
     Active Substance: ENOXAPARIN SODIUM
     Indication: MYOCARDIAL ISCHAEMIA
     Dosage: 70000 IU, BID
     Route: 058
     Dates: start: 20160809
  3. COUMADINE [Concomitant]
     Active Substance: WARFARIN SODIUM
     Dosage: 8 MG, QD
     Route: 048
     Dates: end: 20160809
  4. DOLIPRANE [Concomitant]
     Active Substance: ACETAMINOPHEN
     Dosage: 1000 MG, PRN
     Route: 048
  5. LEVOTHYROX [Concomitant]
     Active Substance: LEVOTHYROXINE
     Dosage: 75 UG, QD
     Route: 048
  6. CEFTAZIDIME. [Concomitant]
     Active Substance: CEFTAZIDIME
     Indication: LUNG INFECTION
     Dosage: 4 G, QD
     Route: 042
     Dates: start: 20160804, end: 20160811
  7. ISOPTINE [Concomitant]
     Active Substance: VERAPAMIL HYDROCHLORIDE
     Dosage: 1 DF, BID
     Route: 048
  8. AMIKACINE                          /00391001/ [Concomitant]
     Active Substance: AMIKACIN
     Indication: LUNG INFECTION
     Dosage: 1 G, EVERY 2 DAYS
     Route: 042
     Dates: start: 20160803, end: 20160805
  9. LANSOPRAZOLE MYLAN [Concomitant]
     Active Substance: LANSOPRAZOLE
     Dosage: 30 MG, QD
     Route: 048
  10. SPIRIVA [Concomitant]
     Active Substance: TIOTROPIUM BROMIDE MONOHYDRATE
     Dosage: 18 UG, QD
     Route: 055
  11. FUNGIZONE [Concomitant]
     Active Substance: AMPHOTERICIN B
     Indication: OROPHARYNGEAL CANDIDIASIS
     Dosage: 1 DF, TID
     Route: 048
     Dates: start: 20160803, end: 20160811

REACTIONS (7)
  - Incorrect route of drug administration [Unknown]
  - Gamma-glutamyltransferase increased [Recovering/Resolving]
  - Faeces discoloured [Unknown]
  - Pruritus [Recovered/Resolved]
  - Transaminases increased [Recovered/Resolved]
  - Rash papular [Recovered/Resolved]
  - Bilirubin conjugated increased [Recovered/Resolved]

NARRATIVE: CASE EVENT DATE: 20160822
